FAERS Safety Report 16623164 (Version 1)
Quarter: 2019Q3

REPORT INFORMATION
  Report Type: Spontaneous
  Country: ES (occurrence: ES)
  Receive Date: 20190723
  Receipt Date: 20190723
  Transmission Date: 20191004
  Serious: Yes (Other)
  Sender: FDA-Public Use
  Company Number: ES-TEVA-2019-ES-1079896

PATIENT
  Age: 31 Year
  Sex: Female

DRUGS (1)
  1. VENLAFAXINA 75 MG, 30 COMPRIMIDOS LIBERACION MODIFICADA [Suspect]
     Active Substance: VENLAFAXINE HYDROCHLORIDE
     Indication: DEPRESSION
     Dosage: 75 MILLIGRAM DAILY;
     Route: 048
     Dates: start: 20190204

REACTIONS (2)
  - Henoch-Schonlein purpura [Unknown]
  - Haematoma [Unknown]

NARRATIVE: CASE EVENT DATE: 20190418
